FAERS Safety Report 4337184-X (Version None)
Quarter: 2004Q2

REPORT INFORMATION
  Report Type: 
  Country: None (occurrence: None)
  Receive Date: 20040413
  Receipt Date: 20040305
  Transmission Date: 20050107
  Serious: Yes (Death, Hospitalization)
  Sender: FDA-Public Use
  Company Number: 200412908GDDC

PATIENT
  Age: 49 Year
  Sex: Female
  Weight: 59.45 kg

DRUGS (27)
  1. TAXOTERE [Suspect]
     Indication: BREAST CANCER
     Route: 042
     Dates: start: 20020913, end: 20021224
  2. DOXORUBICIN [Suspect]
     Indication: BREAST CANCER
     Route: 042
     Dates: start: 20020913, end: 20021224
  3. CYCLOPHOSPHAMIDE [Suspect]
     Indication: BREAST CANCER
     Route: 042
     Dates: start: 20020913, end: 20021224
  4. RADIATION [Concomitant]
     Indication: BREAST CANCER
     Dosage: DOSE: LEFT BREAST CHEST WALL
     Dates: start: 20030305, end: 20030415
  5. MORPHINE SULFATE [Concomitant]
     Indication: PAIN
     Route: 048
     Dates: start: 20040203, end: 20040203
  6. QUININE SULPHATE [Concomitant]
     Indication: MUSCLE CRAMP
     Route: 048
     Dates: start: 20040128, end: 20040128
  7. NAPROXEN [Concomitant]
     Route: 048
     Dates: start: 20040130, end: 20040203
  8. LIDOCAINE HCL VISCOUS [Concomitant]
     Indication: EXCORIATION
     Route: 061
     Dates: start: 20040130, end: 20040202
  9. LORAZEPAM [Concomitant]
     Indication: RASH
     Route: 048
     Dates: start: 20040130, end: 20040203
  10. ONDANSETRON HCL [Concomitant]
     Indication: NAUSEA
     Route: 048
     Dates: start: 20040201, end: 20040202
  11. FENTANYL [Concomitant]
     Indication: PAIN
     Route: 061
     Dates: start: 20040129, end: 20040201
  12. PANTOPRAZOLE [Concomitant]
     Indication: DYSPEPSIA
     Route: 048
     Dates: start: 20040129, end: 20040203
  13. DEXAMETHASONE [Concomitant]
     Indication: SPINAL CORD DISORDER
     Route: 048
     Dates: start: 20040129, end: 20040203
  14. METOCLOPRAMIDE [Concomitant]
     Indication: NAUSEA
     Route: 048
     Dates: start: 20040129, end: 20040203
  15. DOCUSATE SODIUM [Concomitant]
     Indication: CONSTIPATION
     Route: 048
     Dates: start: 20040129, end: 20040203
  16. OXYCODONE [Concomitant]
     Indication: PAIN
     Route: 048
     Dates: start: 20040129, end: 20040203
  17. LETROZOLE [Concomitant]
     Indication: METASTASIS
     Route: 048
     Dates: start: 20031208, end: 20040202
  18. TELMISARTAN [Concomitant]
     Indication: HYPERTENSION
     Route: 048
     Dates: start: 20020730, end: 20040202
  19. THYROXINE [Concomitant]
     Indication: HYPOTHYROIDISM
     Route: 048
     Dates: start: 19990101, end: 20040203
  20. ACETAMINOPHEN [Concomitant]
     Indication: PAIN
     Route: 048
     Dates: start: 20040131, end: 20040131
  21. CIPROFLOXACIN [Concomitant]
     Route: 048
     Dates: start: 20020917, end: 20030109
  22. GENTAMICIN [Concomitant]
     Route: 042
     Dates: start: 20020922, end: 20020926
  23. VANCOMYCIN [Concomitant]
     Route: 042
     Dates: start: 20020924, end: 20020927
  24. CEFEPIME [Concomitant]
     Route: 042
     Dates: start: 20020921, end: 20020927
  25. NEUPOGEN [Concomitant]
     Route: 058
     Dates: start: 20020924, end: 20030104
  26. XELODA [Concomitant]
     Dates: start: 20031201, end: 20040101
  27. ZOMETA [Concomitant]
     Dates: start: 20031201, end: 20040101

REACTIONS (12)
  - ACUTE MYELOID LEUKAEMIA [None]
  - ARTHROPATHY [None]
  - BONE MARROW NECROSIS [None]
  - BREAST CANCER METASTATIC [None]
  - DISEASE PROGRESSION [None]
  - DISSEMINATED INTRAVASCULAR COAGULATION [None]
  - METASTASES TO BONE [None]
  - METASTASES TO SPINE [None]
  - MULTI-ORGAN FAILURE [None]
  - PARAESTHESIA [None]
  - SENSORY DISTURBANCE [None]
  - SPINAL OSTEOARTHRITIS [None]
